FAERS Safety Report 11474955 (Version 1)
Quarter: 2015Q3

REPORT INFORMATION
  Report Type: Spontaneous
  Country: US (occurrence: None)
  Receive Date: 20150902
  Receipt Date: 20150902
  Transmission Date: 20151125
  Serious: Yes (Hospitalization)
  Sender: FDA-Public Use
  Company Number: A-US2014-110383

PATIENT
  Age: 75 Year
  Sex: Male

DRUGS (4)
  1. REVATIO (SILDENAFIL CITRATE) [Concomitant]
  2. WARFARIN [Concomitant]
     Active Substance: WARFARIN
  3. VELETRI [Suspect]
     Active Substance: EPOPROSTENOL
     Indication: COR PULMONALE CHRONIC
     Dosage: 2 NG/KG, PER MIN
     Route: 042
     Dates: start: 20140403
  4. ADCIRCA [Concomitant]
     Active Substance: TADALAFIL

REACTIONS (2)
  - Device related infection [None]
  - Medical device complication [None]
